FAERS Safety Report 5468287-4 (Version None)
Quarter: 2007Q3

REPORT INFORMATION
  Report Type: 
  Country: None (occurrence: None)
  Receive Date: 20070921
  Receipt Date: 20070907
  Transmission Date: 20080115
  Serious: Yes (Life-Threatening)
  Sender: FDA-Public Use
  Company Number: S07-FRA-02785-01

PATIENT
  Age: 77 Year
  Sex: Male

DRUGS (7)
  1. CITALOPRAM HYDROBROMIDE [Suspect]
     Dates: end: 20070202
  2. PREVISCAN (FLUINDIONE) [Suspect]
     Dates: end: 20070202
  3. PREVISCAN (FLUINDIONE) [Suspect]
     Dates: start: 20070221
  4. POTASSIUM CHLORIDE [Concomitant]
  5. LASIX [Concomitant]
  6. DIGOXIN [Concomitant]
  7. LORAZEPAM [Concomitant]

REACTIONS (5)
  - COMA [None]
  - DRUG INTERACTION [None]
  - FALL [None]
  - PNEUMONIA STREPTOCOCCAL [None]
  - SUBDURAL HAEMATOMA [None]
